FAERS Safety Report 12060552 (Version 1)
Quarter: 2016Q1

REPORT INFORMATION
  Report Type: Spontaneous
  Country: CO (occurrence: CO)
  Receive Date: 20160210
  Receipt Date: 20160210
  Transmission Date: 20160526
  Serious: Yes (Hospitalization, Other)
  Sender: FDA-Public Use
  Company Number: CO-JNJFOC-20151107417

PATIENT
  Age: 57 Year
  Sex: Female
  Weight: 75 kg

DRUGS (3)
  1. INVEGA SUSTENNA [Suspect]
     Active Substance: PALIPERIDONE PALMITATE
     Indication: SCHIZOPHRENIA
     Route: 030
     Dates: start: 20120206
  2. LORAZEPAM. [Concomitant]
     Active Substance: LORAZEPAM
     Indication: PRODUCT USED FOR UNKNOWN INDICATION
     Route: 065
  3. PALIPERIDONE [Concomitant]
     Active Substance: PALIPERIDONE
     Indication: PRODUCT USED FOR UNKNOWN INDICATION
     Route: 065

REACTIONS (9)
  - Anxiety [Unknown]
  - Insomnia [Unknown]
  - Aggression [Recovering/Resolving]
  - Drug dose omission [Unknown]
  - Hallucination [Recovering/Resolving]
  - Impaired self-care [Recovering/Resolving]
  - Speech disorder [Recovering/Resolving]
  - Psychomotor hyperactivity [Unknown]
  - Hostility [Recovering/Resolving]

NARRATIVE: CASE EVENT DATE: 20151031
